FAERS Safety Report 19794621 (Version 2)
Quarter: 2023Q4

REPORT INFORMATION
  Report Type: Spontaneous
  Country: DE (occurrence: DE)
  Receive Date: 20210907
  Receipt Date: 20231031
  Transmission Date: 20240109
  Serious: Yes (Hospitalization, Other)
  Sender: FDA-Public Use
  Company Number: DE-CADRBFARM-2021166993

PATIENT
  Age: 59 Year
  Sex: Male
  Weight: 118 kg

DRUGS (1)
  1. FINASTERIDE [Suspect]
     Active Substance: FINASTERIDE
     Indication: Benign prostatic hyperplasia
     Dosage: UNK
     Route: 048
     Dates: start: 20210215, end: 20210406

REACTIONS (26)
  - Depression [Unknown]
  - Erectile dysfunction [Not Recovered/Not Resolved]
  - Major depression [Not Recovered/Not Resolved]
  - Suicidal ideation [Not Recovered/Not Resolved]
  - Brain fog [Not Recovered/Not Resolved]
  - Partner stress [Not Recovered/Not Resolved]
  - Apathy [Not Recovered/Not Resolved]
  - Muscle atrophy [Not Recovered/Not Resolved]
  - Anxiety [Not Recovered/Not Resolved]
  - Disturbance in attention [Not Recovered/Not Resolved]
  - Social anxiety disorder [Not Recovered/Not Resolved]
  - Personality disorder [Not Recovered/Not Resolved]
  - Loss of personal independence in daily activities [Not Recovered/Not Resolved]
  - Fatigue [Not Recovered/Not Resolved]
  - Male genital atrophy [Unknown]
  - Penile infection [Unknown]
  - Muscle discomfort [Unknown]
  - Obsessive rumination [Unknown]
  - Penile discomfort [Unknown]
  - Prostatic disorder [Unknown]
  - Impaired quality of life [Unknown]
  - Post 5-alpha-reductase inhibitor syndrome [Not Recovered/Not Resolved]
  - Anorgasmia [Unknown]
  - Semen liquefaction [Unknown]
  - Premature ejaculation [Unknown]
  - Product communication issue [Unknown]

NARRATIVE: CASE EVENT DATE: 20210406
